FAERS Safety Report 24254472 (Version 1)
Quarter: 2024Q3

REPORT INFORMATION
  Report Type: Spontaneous
  Country: US (occurrence: None)
  Receive Date: 20240826
  Receipt Date: 20240826
  Transmission Date: 20241016
  Serious: Yes (Hospitalization)
  Sender: Public
  Company Number: None

PATIENT
  Age: 49 Year
  Sex: Female
  Weight: 86.4 kg

DRUGS (5)
  1. NEXPLANON [Suspect]
     Active Substance: ETONOGESTREL
     Indication: Menstrual cycle management
     Dosage: 1 INJECTION EVERY THREE YEARS SUBCUTANEOUS
     Route: 058
     Dates: start: 20230606, end: 20240823
  2. LEVOTHYROXINE [Concomitant]
     Active Substance: LEVOTHYROXINE\LEVOTHYROXINE SODIUM
  3. DULOXETINE [Concomitant]
     Active Substance: DULOXETINE
  4. QUETIAPINE [Concomitant]
     Active Substance: QUETIAPINE
  5. GABAPENTIN [Concomitant]
     Active Substance: GABAPENTIN

REACTIONS (3)
  - Mood swings [None]
  - Depression [None]
  - Self-destructive behaviour [None]

NARRATIVE: CASE EVENT DATE: 20240611
